FAERS Safety Report 7107638-1 (Version None)
Quarter: 2010Q4

REPORT INFORMATION
  Report Type: 
  Country: None (occurrence: None)
  Receive Date: 20101117
  Receipt Date: 20101111
  Transmission Date: 20110411
  Serious: Yes (Life-Threatening, Hospitalization)
  Sender: FDA-Public Use
  Company Number: FR-AMGEN-FRASP2010001095

PATIENT

DRUGS (6)
  1. NPLATE [Suspect]
     Indication: IDIOPATHIC THROMBOCYTOPENIC PURPURA
     Dosage: 3 A?G/KG, QWK
     Route: 058
     Dates: start: 20100801, end: 20100907
  2. RITUXIMAB [Suspect]
     Indication: IDIOPATHIC THROMBOCYTOPENIC PURPURA
     Dosage: 1 G, ONE TIME DOSE
     Route: 042
     Dates: start: 20100825, end: 20100825
  3. RITUXIMAB [Suspect]
     Dosage: 1 UNK, ONE TIME DOSE
     Route: 042
     Dates: start: 20100906, end: 20100906
  4. CORTICOSTEROID NOS [Concomitant]
     Dosage: 240 MG, ONE TIME DOSE
     Dates: start: 20100701, end: 20100701
  5. CORTICOSTEROID NOS [Concomitant]
     Dosage: 1 MG/KG, UNK
     Dates: start: 20100701
  6. IMMUNE GLOBULIN NOS [Concomitant]
     Dosage: 2 UNK, UNK

REACTIONS (2)
  - PULMONARY EMBOLISM [None]
  - THROMBOCYTOSIS [None]
